FAERS Safety Report 13015247 (Version 1)
Quarter: 2016Q4

REPORT INFORMATION
  Report Type: Spontaneous
  Country: US (occurrence: US)
  Receive Date: 20161211
  Receipt Date: 20161211
  Transmission Date: 20170207
  Serious: No
  Sender: FDA-Public Use
  Company Number: US-BIOGEN-2016BI00326433

PATIENT
  Sex: Female

DRUGS (1)
  1. TECFIDERA [Suspect]
     Active Substance: DIMETHYL FUMARATE
     Indication: MULTIPLE SCLEROSIS
     Dates: start: 20150731

REACTIONS (1)
  - Vitamin D decreased [Unknown]
